FAERS Safety Report 10418352 (Version 1)
Quarter: 2014Q2

REPORT INFORMATION
  Report Type: Spontaneous
  Country: US (occurrence: None)
  Receive Date: 20140613
  Receipt Date: 20140613
  Transmission Date: 20141212
  Serious: Yes (Hospitalization)
  Sender: FDA-Public Use
  Company Number: 1356021

PATIENT
  Age: 35 Year
  Sex: Female

DRUGS (12)
  1. ZELBORAF (VEMURAFENIB) [Suspect]
     Indication: MALIGNANT MELANOMA
     Route: 048
     Dates: start: 20140217
  2. HYDROXYCHLOROQUINE SULFATE (HYDROXYCHLOROQUINE SULFATE) (TABLET) [Concomitant]
  3. CELEXA (UNITED STATES) (CITALOPRAM HYDROBROMIDE) [Concomitant]
  4. BENADRYL (UNITED STATES) (DIPHENHYDRAMINE HYDROBROMIDE) [Concomitant]
  5. DOXUSATE SODIUM [Concomitant]
  6. FENDYL (CODEINE PHOSPHATE , EPHEDRINE HYDROCHLORIDE, PROMETHAZINE HYDROCHLORIDE) [Concomitant]
  7. TRAMADOL [Concomitant]
  8. MOM ENEMA (MAGNESIUM HYDROXIDE) [Concomitant]
  9. ONDANSETRON [Concomitant]
  10. OXYCODONE [Concomitant]
  11. PROCHLORPERAZINE [Concomitant]
  12. SENNA [Concomitant]

REACTIONS (1)
  - Pain in extremity [None]
